FAERS Safety Report 12891600 (Version 1)
Quarter: 2016Q4

REPORT INFORMATION
  Report Type: Other
  Country: IT (occurrence: IT)
  Receive Date: 20161028
  Receipt Date: 20161028
  Transmission Date: 20170207
  Serious: No
  Sender: FDA-Public Use
  Company Number: IT-LUPIN PHARMACEUTICALS INC.-2016-03472

PATIENT
  Age: 61 Year
  Sex: Male

DRUGS (3)
  1. BENZATHINE PENICILLIN [Concomitant]
     Indication: SYPHILIS
     Route: 030
  2. CEFTRIAXONE. [Suspect]
     Active Substance: CEFTRIAXONE
     Indication: SYPHILIS
     Route: 065
  3. DOXYCYCLINE. [Suspect]
     Active Substance: DOXYCYCLINE
     Indication: SYPHILIS
     Route: 065

REACTIONS (1)
  - Jarisch-Herxheimer reaction [Unknown]
